FAERS Safety Report 7316307-4 (Version None)
Quarter: 2011Q1

REPORT INFORMATION
  Report Type: 
  Country: None (occurrence: None)
  Receive Date: 20110225
  Receipt Date: 20110221
  Transmission Date: 20110831
  Serious: Yes (Hospitalization)
  Sender: FDA-Public Use
  Company Number: US-B.I. PHARMACEUTICALS,INC./RIDGEFIELD-2010-BP-13721BP

PATIENT
  Sex: Female

DRUGS (8)
  1. MULTAQ [Concomitant]
     Dosage: 800 MG
  2. PRADAXA [Suspect]
     Indication: ATRIAL FIBRILLATION
     Dosage: 300 MG
     Route: 048
     Dates: start: 20101111
  3. WARFARIN SODIUM [Concomitant]
     Indication: ATRIAL FIBRILLATION
     Dates: end: 20101101
  4. METOPROLOL SUCCINATE [Concomitant]
     Indication: ATRIAL FIBRILLATION
     Dosage: 100 MG
  5. FUROSEMIDE [Concomitant]
     Dosage: 20 MG
  6. TRICOR [Concomitant]
     Indication: BLOOD CHOLESTEROL INCREASED
     Dosage: 145 MG
  7. ACTONEL [Concomitant]
     Indication: OSTEOPENIA
  8. LEXAPRO [Concomitant]
     Dosage: 10 MG

REACTIONS (3)
  - GINGIVAL BLEEDING [None]
  - PLEURAL EFFUSION [None]
  - ATRIAL FIBRILLATION [None]
